FAERS Safety Report 22125415 (Version 1)
Quarter: 2023Q1

REPORT INFORMATION
  Report Type: Spontaneous
  Country: JP (occurrence: JP)
  Receive Date: 20230322
  Receipt Date: 20230322
  Transmission Date: 20230417
  Serious: Yes (Other)
  Sender: FDA-Public Use
  Company Number: JP-ANIPHARMA-2023-JP-000111

PATIENT
  Age: 60 Year
  Sex: Female

DRUGS (2)
  1. ARIMIDEX [Suspect]
     Active Substance: ANASTROZOLE
     Indication: Breast cancer female
     Dosage: 1 MG QD
     Route: 048
     Dates: start: 202102, end: 20230213
  2. IBRANCE [Suspect]
     Active Substance: PALBOCICLIB
     Dosage: 100MG
     Route: 048
     Dates: start: 202102, end: 20230213

REACTIONS (1)
  - Interstitial lung disease [Unknown]
